FAERS Safety Report 5278532-6 (Version None)
Quarter: 2007Q1

REPORT INFORMATION
  Report Type: 
  Country: None (occurrence: None)
  Receive Date: 20070328
  Receipt Date: 20070316
  Transmission Date: 20070707
  Serious: Yes (Hospitalization)
  Sender: FDA-Public Use
  Company Number: GB-BRISTOL-MYERS SQUIBB COMPANY-13725130

PATIENT
  Age: 78 Year
  Sex: Female

DRUGS (5)
  1. VINFLUNINE [Suspect]
     Indication: BREAST CANCER METASTATIC
     Route: 042
     Dates: start: 20070228, end: 20070307
  2. EPIRUBICIN [Suspect]
     Indication: BREAST CANCER METASTATIC
     Route: 042
     Dates: start: 20070228, end: 20070307
  3. LANSOPRAZOLE [Concomitant]
     Dates: start: 20060901
  4. DURAGESIC-100 [Concomitant]
     Dates: start: 20070101
  5. TEMAZEPAM [Concomitant]
     Dates: start: 19850101

REACTIONS (4)
  - ABDOMINAL DISCOMFORT [None]
  - FAECAL INCONTINENCE [None]
  - NEUTROPENIA [None]
  - URINARY RETENTION [None]
